FAERS Safety Report 11360262 (Version 1)
Quarter: 2015Q3

REPORT INFORMATION
  Report Type: Spontaneous
  Country: IT (occurrence: IT)
  Receive Date: 20150810
  Receipt Date: 20150810
  Transmission Date: 20151125
  Serious: Yes (Death, Other)
  Sender: FDA-Public Use
  Company Number: IT-JNJFOC-20150722647

PATIENT
  Sex: Male

DRUGS (3)
  1. PREDNISONE. [Suspect]
     Active Substance: PREDNISONE
     Indication: PROSTATE CANCER METASTATIC
     Dosage: 28 DAY CYCLE
     Route: 065
  2. LUTEINIZING HORMONE-RELEASING HORMONE [Concomitant]
     Active Substance: LUTEINIZING HORMONE
     Route: 065
  3. ABIRATERONE ACETATE [Suspect]
     Active Substance: ABIRATERONE ACETATE
     Indication: PROSTATE CANCER METASTATIC
     Route: 065

REACTIONS (16)
  - Cardiac failure [Unknown]
  - Disease progression [Unknown]
  - Death [Fatal]
  - Pneumonia [Unknown]
  - Asthenia [Unknown]
  - Infection [Unknown]
  - Diabetes mellitus [Unknown]
  - Arrhythmia [Unknown]
  - Pulmonary embolism [Unknown]
  - Metabolic syndrome [Unknown]
  - Hepatotoxicity [Unknown]
  - Hypokalaemia [Unknown]
  - Fluid retention [Unknown]
  - Angina pectoris [Unknown]
  - Anaemia [Unknown]
  - Musculoskeletal pain [Unknown]
